FAERS Safety Report 6579613-7 (Version None)
Quarter: 2010Q1

REPORT INFORMATION
  Report Type: 
  Country: None (occurrence: None)
  Receive Date: 20100209
  Receipt Date: 20100209
  Transmission Date: 20100710
  Serious: Yes (Life-Threatening)
  Sender: FDA-Public Use
  Company Number: None

PATIENT
  Age: 61 Year
  Sex: Female
  Weight: 63.9572 kg

DRUGS (2)
  1. PREDNISONE 5MG QUALITEST [Suspect]
     Indication: RHEUMATOID ARTHRITIS
     Dosage: 6, 4 ,3, 2 , DAILY PO
     Route: 048
     Dates: start: 20091028, end: 20091119
  2. HYDROXYCHLOROQUINE SULFATE [Suspect]
     Indication: RHEUMATOID ARTHRITIS
     Dosage: 1TABLET TWICE DAILY PO
     Route: 048
     Dates: start: 20091028, end: 20091119

REACTIONS (12)
  - BURNING SENSATION [None]
  - DRUG ERUPTION [None]
  - EYE SWELLING [None]
  - GENERALISED ERYTHEMA [None]
  - MYALGIA [None]
  - OEDEMA PERIPHERAL [None]
  - RASH GENERALISED [None]
  - SKIN DISORDER [None]
  - SKIN EXFOLIATION [None]
  - SKIN INFECTION [None]
  - SWELLING [None]
  - SWELLING FACE [None]
